FAERS Safety Report 5567131-4 (Version None)
Quarter: 2007Q4

REPORT INFORMATION
  Report Type: 
  Country: None (occurrence: None)
  Receive Date: 20071219
  Receipt Date: 20071207
  Transmission Date: 20080405
  Serious: Yes (Other)
  Sender: FDA-Public Use
  Company Number: JP-WYE-H01052407

PATIENT
  Sex: Male
  Weight: 60.4 kg

DRUGS (10)
  1. AMIODARONE HCL [Suspect]
     Indication: VENTRICULAR TACHYCARDIA
     Route: 048
     Dates: start: 20020101, end: 20031001
  2. AMIODARONE HCL [Suspect]
     Indication: CARDIAC FAILURE
     Route: 048
     Dates: start: 20031001, end: 20051108
  3. ALDACTONE [Concomitant]
     Route: 048
     Dates: end: 20061006
  4. DIGOSIN [Concomitant]
     Route: 048
     Dates: end: 20061006
  5. ASPIRIN [Concomitant]
     Route: 048
     Dates: end: 20061006
  6. TORSEMIDE [Concomitant]
     Route: 048
     Dates: end: 20061006
  7. ACARDI [Concomitant]
     Route: 048
     Dates: end: 20061006
  8. WARFARIN SODIUM [Concomitant]
     Dosage: 0.5 MG IN MORNING AND 2 MG IN EVENING
     Route: 048
     Dates: end: 20061006
  9. LASIX [Concomitant]
     Dosage: 80 MG IN AM; 40 MG IN DAYTIME
     Route: 048
     Dates: end: 20061006
  10. DIART [Concomitant]
     Route: 048
     Dates: end: 20061006

REACTIONS (3)
  - BRADYCARDIA [None]
  - HYPERTHYROIDISM [None]
  - THYROIDITIS [None]
